FAERS Safety Report 5919705-6 (Version None)
Quarter: 2008Q4

REPORT INFORMATION
  Report Type: 
  Country: None (occurrence: None)
  Receive Date: 20081015
  Receipt Date: 20081006
  Transmission Date: 20090506
  Serious: Yes (Hospitalization)
  Sender: FDA-Public Use
  Company Number: CA-WYE-G02307608

PATIENT
  Sex: Male
  Weight: 75.3 kg

DRUGS (1)
  1. TACROLIMUS [Suspect]
     Indication: PROPHYLAXIS AGAINST TRANSPLANT REJECTION
     Route: 048
     Dates: start: 20080707

REACTIONS (3)
  - ANURIA [None]
  - BLOOD CREATININE INCREASED [None]
  - PYREXIA [None]
